FAERS Safety Report 9306175 (Version 1)
Quarter: 2013Q2

REPORT INFORMATION
  Report Type: Spontaneous
  Country: CA (occurrence: CA)
  Receive Date: 20130523
  Receipt Date: 20130523
  Transmission Date: 20140414
  Serious: Yes (Other)
  Sender: FDA-Public Use
  Company Number: CA-GLAXOSMITHKLINE-A1023620A

PATIENT
  Age: 67 Year
  Sex: Male

DRUGS (2)
  1. AVODART [Suspect]
     Indication: PRODUCT USED FOR UNKNOWN INDICATION
     Route: 065
  2. FLOMAX [Concomitant]

REACTIONS (1)
  - Atrial fibrillation [Unknown]
